FAERS Safety Report 7715256-7 (Version None)
Quarter: 2011Q3

REPORT INFORMATION
  Report Type: 
  Country: None (occurrence: None)
  Receive Date: 20110829
  Receipt Date: 20110822
  Transmission Date: 20111222
  Serious: Yes (Other)
  Sender: FDA-Public Use
  Company Number: US-PFIZER INC-2011196312

PATIENT
  Sex: Male

DRUGS (1)
  1. DILANTIN-125 [Suspect]

REACTIONS (2)
  - HYPERTENSION [None]
  - NEPHROLITHIASIS [None]
